FAERS Safety Report 9167026 (Version 1)
Quarter: 2013Q1

REPORT INFORMATION
  Report Type: Spontaneous
  Country: CA (occurrence: CA)
  Receive Date: 20130318
  Receipt Date: 20130318
  Transmission Date: 20140127
  Serious: Yes (Other)
  Sender: FDA-Public Use
  Company Number: CA-AMGEN-CANSP2013013444

PATIENT
  Age: 55 Year
  Sex: Female

DRUGS (5)
  1. ENBREL [Suspect]
     Indication: RHEUMATOID ARTHRITIS
     Dosage: 50 MG, QWK
     Route: 058
     Dates: start: 20120329, end: 20121228
  2. CYMBALTA [Concomitant]
     Dosage: 60 MG DAILY
     Route: 048
  3. METOPROLOL [Concomitant]
     Dosage: 50MG TWICE DAILY
     Route: 048
  4. THYROXIN [Concomitant]
     Dosage: 0.02 MG DAILY
     Route: 048
  5. AMLODIPINE [Concomitant]
     Dosage: 1.5 TAB DAILY
     Route: 048

REACTIONS (5)
  - Reflux gastritis [Recovered/Resolved]
  - Abdominal pain upper [Recovered/Resolved]
  - Tooth injury [Recovered/Resolved]
  - Headache [Recovered/Resolved]
  - Pain in jaw [Recovered/Resolved]
